FAERS Safety Report 4422504-8 (Version None)
Quarter: 2004Q3

REPORT INFORMATION
  Report Type: 
  Country: None (occurrence: None)
  Receive Date: 20040806
  Receipt Date: 20040726
  Transmission Date: 20050211
  Serious: No
  Sender: FDA-Public Use
  Company Number: 04P-163-0268212-00

PATIENT
  Age: 44 Year
  Sex: Female
  Weight: 53.0709 kg

DRUGS (15)
  1. HUMIRA [Suspect]
     Indication: RHEUMATOID ARTHRITIS
     Dosage: 40 MG, 1 IN 1 WK, SUBCUTANEOUS
     Route: 058
     Dates: start: 20030101, end: 20040101
  2. HUMIRA [Suspect]
     Indication: RHEUMATOID ARTHRITIS
     Dosage: 40 MG, 1 IN 1 WK, SUBCUTANEOUS
     Route: 058
     Dates: start: 20040101, end: 20040501
  3. HUMIRA [Suspect]
     Indication: RHEUMATOID ARTHRITIS
     Dosage: 40 MG, 1 IN 1 WK, SUBCUTANEOUS
     Route: 058
     Dates: start: 20040726
  4. METHOTREXATE [Concomitant]
  5. ROFECOXIB [Concomitant]
  6. FOLIC ACID [Concomitant]
  7. LEFLUNOMIDE [Concomitant]
  8. ESTROTEST [Concomitant]
  9. PAROXETINE HYDROCHLORIDE [Concomitant]
  10. SUCRALFATE [Concomitant]
  11. PILOCARPINE HYDROCHLORIDE [Concomitant]
  12. LEVOTHYROXINE SODIUM [Concomitant]
  13. METAXALONE [Concomitant]
  14. ESOMEPRAZOLE [Concomitant]
  15. ZOLPIDEM TARTRATE [Concomitant]

REACTIONS (8)
  - BONE INFECTION [None]
  - CHOKING [None]
  - DYSPNOEA [None]
  - FEELING ABNORMAL [None]
  - SCRATCH [None]
  - SYNCOPE [None]
  - TOOTH EXTRACTION [None]
  - VOCAL CORD DISORDER [None]
